FAERS Safety Report 15129939 (Version 1)
Quarter: 2018Q3

REPORT INFORMATION
  Report Type: Spontaneous
  Country: GR (occurrence: GR)
  Receive Date: 20180711
  Receipt Date: 20180711
  Transmission Date: 20181010
  Serious: Yes (Other)
  Sender: FDA-Public Use
  Company Number: GR-ASTRAZENECA-2018SE86245

PATIENT
  Age: 45 Year
  Weight: 120 kg

DRUGS (3)
  1. CRESTOR [Suspect]
     Active Substance: ROSUVASTATIN CALCIUM
     Indication: DYSLIPIDAEMIA
     Dosage: 1.0DF UNKNOWN
     Route: 048
     Dates: start: 20170330, end: 20170711
  2. INEGY [Suspect]
     Active Substance: EZETIMIBE\SIMVASTATIN
     Indication: DYSLIPIDAEMIA
     Dosage: 1.0DF UNKNOWN
     Route: 065
     Dates: start: 20170711, end: 201710
  3. LIPTRUZET [Suspect]
     Active Substance: ATORVASTATIN CALCIUM\EZETIMIBE
     Indication: DYSLIPIDAEMIA
     Dosage: 1.0DF UNKNOWN
     Route: 065
     Dates: start: 20170302, end: 20170330

REACTIONS (3)
  - Blood creatine phosphokinase increased [Unknown]
  - Fatigue [Unknown]
  - Myalgia [Unknown]
